FAERS Safety Report 16729818 (Version 1)
Quarter: 2019Q3

REPORT INFORMATION
  Report Type: Spontaneous
  Country: TR (occurrence: TR)
  Receive Date: 20190822
  Receipt Date: 20190822
  Transmission Date: 20191005
  Serious: Yes (Hospitalization, Other)
  Sender: FDA-Public Use
  Company Number: TR-NOVOPROD-679945

PATIENT
  Age: 21 Month
  Sex: Female

DRUGS (2)
  1. NOVOSEVEN [Suspect]
     Active Substance: COAGULATION FACTOR VIIA RECOMBINANT HUMAN
     Indication: PROPHYLAXIS
     Dosage: 50 MICROGRAMS/KG/DOSE
     Route: 042
  2. NOVOSEVEN [Suspect]
     Active Substance: COAGULATION FACTOR VIIA RECOMBINANT HUMAN
     Indication: FACTOR VII DEFICIENCY
     Dosage: 30 MICROGRAMS/KG/DOSE,THREE TIMES IN A WEEK
     Route: 042

REACTIONS (3)
  - Off label use [Unknown]
  - Anaphylactoid reaction [Unknown]
  - Anti factor VII antibody positive [Unknown]
